FAERS Safety Report 11434060 (Version 1)
Quarter: 2015Q3

REPORT INFORMATION
  Report Type: Spontaneous
  Country: GB (occurrence: GB)
  Receive Date: 20150831
  Receipt Date: 20150831
  Transmission Date: 20151125
  Serious: Yes (Other)
  Sender: FDA-Public Use
  Company Number: GB-PFIZER INC-2015286342

PATIENT
  Age: 81 Year
  Sex: Female
  Weight: 45 kg

DRUGS (3)
  1. DOXYCYCLINE MONOHYDRATE [Suspect]
     Active Substance: DOXYCYCLINE
     Dosage: 100 MG, 1X/DAY
  2. DOXYCYCLINE MONOHYDRATE [Suspect]
     Active Substance: DOXYCYCLINE
     Indication: COUGH
     Dosage: 100 MG, 2X/DAY
     Route: 048
     Dates: start: 20150602
  3. AMOXICILLIN. [Suspect]
     Active Substance: AMOXICILLIN
     Indication: COUGH
     Dosage: 250 MG, 3X/DAY
     Route: 048
     Dates: start: 20150527

REACTIONS (2)
  - Dizziness [Recovered/Resolved]
  - Malaise [Recovered/Resolved]
